FAERS Safety Report 4558273-0 (Version None)
Quarter: 2005Q1

REPORT INFORMATION
  Report Type: 
  Country: None (occurrence: None)
  Receive Date: 20050103
  Receipt Date: 20041021
  Transmission Date: 20050727
  Serious: Yes (Other)
  Sender: FDA-Public Use
  Company Number: 2004UW21885

PATIENT
  Age: 44 Year
  Sex: Female
  Weight: 84.368 kg

DRUGS (1)
  1. CRESTOR [Suspect]
     Indication: HYPERCHOLESTEROLAEMIA
     Dosage: 10 MG PO
     Route: 048
     Dates: start: 20041001

REACTIONS (5)
  - CHEILITIS [None]
  - DIZZINESS [None]
  - GINGIVAL DISORDER [None]
  - GLOSSITIS [None]
  - THROAT IRRITATION [None]
